FAERS Safety Report 7454491-2 (Version None)
Quarter: 2011Q2

REPORT INFORMATION
  Report Type: 
  Country: None (occurrence: None)
  Receive Date: 20110425
  Receipt Date: 20110418
  Transmission Date: 20111010
  Serious: Yes (Hospitalization)
  Sender: FDA-Public Use
  Company Number: 2011MA003547

PATIENT
  Age: 20 Year
  Sex: Female
  Weight: 80 kg

DRUGS (5)
  1. LIDOCAINE [Suspect]
     Indication: ANAESTHESIA
     Dosage: 40 MG;1X;IV
     Route: 042
  2. PROPOFOL [Concomitant]
  3. FENTANYL [Concomitant]
  4. ATRACURIUM BESYLATE [Concomitant]
  5. BESILATE [Concomitant]

REACTIONS (5)
  - PETECHIAE [None]
  - BLOOD GASES ABNORMAL [None]
  - FAT EMBOLISM [None]
  - LUNG CONSOLIDATION [None]
  - THROMBOCYTOPENIA [None]
